FAERS Safety Report 8877646 (Version 1)
Quarter: 2012Q4

REPORT INFORMATION
  Report Type: Spontaneous
  Country: US (occurrence: None)
  Receive Date: 20121026
  Receipt Date: 20121026
  Transmission Date: 20130627
  Serious: Yes (Hospitalization, Other)
  Sender: FDA-Public Use
  Company Number: AUR-APL-2012-04518

PATIENT
  Age: 67 Year
  Sex: Male

DRUGS (2)
  1. HYDROCODONE ACETAMINOPHEN [Suspect]
     Indication: CERVICOGENIC HEADACHE
     Dosage: three tablets (10 / 325mg)
  2. HYDROCODONE + ACETAMINOPHEN [Suspect]
     Dosage: three tablets (10/ 325mg) 6-8 times daily for almost 3 years, Unknown

REACTIONS (20)
  - Drug dependence [None]
  - Drug withdrawal syndrome [None]
  - Hyperhidrosis [None]
  - Dizziness [None]
  - Nausea [None]
  - Palpitations [None]
  - Tremor [None]
  - Fatigue [None]
  - Balance disorder [None]
  - Loss of consciousness [None]
  - Pain [None]
  - Disturbance in attention [None]
  - Night sweats [None]
  - Depression [None]
  - Crying [None]
  - Arthralgia [None]
  - Neck pain [None]
  - Anxiety [None]
  - Drug ineffective [None]
  - Drug administration error [None]
